FAERS Safety Report 12720602 (Version 1)
Quarter: 2016Q3

REPORT INFORMATION
  Report Type: Spontaneous
  Country: US (occurrence: US)
  Receive Date: 20160907
  Receipt Date: 20160907
  Transmission Date: 20161109
  Serious: Yes (Other)
  Sender: FDA-Public Use
  Company Number: US-PFIZER INC-2016410041

PATIENT
  Age: 56 Year
  Sex: Female

DRUGS (1)
  1. VINCRISTINE SULFATE. [Suspect]
     Active Substance: VINCRISTINE SULFATE
     Dosage: UNK

REACTIONS (4)
  - Acute lymphocytic leukaemia [Unknown]
  - Second primary malignancy [Unknown]
  - Hereditary motor and sensory neuropathy [Unknown]
  - Nervous system disorder [Unknown]
